FAERS Safety Report 6216982-1 (Version None)
Quarter: 2009Q2

REPORT INFORMATION
  Report Type: 
  Country: None (occurrence: None)
  Receive Date: 20090604
  Receipt Date: 20090526
  Transmission Date: 20091009
  Serious: Yes (Death)
  Sender: FDA-Public Use
  Company Number: CERZ-1000656

PATIENT
  Age: 10 Year
  Sex: Male

DRUGS (1)
  1. CEREZYME [Suspect]
     Indication: GAUCHER'S DISEASE
     Dosage: INTRAVENOUS
     Route: 042
     Dates: start: 20001001

REACTIONS (6)
  - APRAXIA [None]
  - CONDITION AGGRAVATED [None]
  - CONVULSION [None]
  - MOVEMENT DISORDER [None]
  - MYOCLONUS [None]
  - SPEECH DISORDER DEVELOPMENTAL [None]
